FAERS Safety Report 6732414-9 (Version None)
Quarter: 2010Q2

REPORT INFORMATION
  Report Type: 
  Country: None (occurrence: None)
  Receive Date: 20100519
  Receipt Date: 20100511
  Transmission Date: 20101027
  Serious: Yes (Hospitalization)
  Sender: FDA-Public Use
  Company Number: JP-MERCK-1004USA01701

PATIENT
  Age: 4 Year
  Sex: Female

DRUGS (3)
  1. SINGULAIR [Suspect]
     Indication: ASTHMA
     Route: 048
     Dates: start: 20100313
  2. SINGULAIR [Suspect]
     Route: 048
     Dates: start: 20100319
  3. SINGULAIR [Suspect]
     Route: 048
     Dates: start: 20100325

REACTIONS (2)
  - ALTERED STATE OF CONSCIOUSNESS [None]
  - NECK PAIN [None]
